FAERS Safety Report 7630309-X (Version None)
Quarter: 2011Q3

REPORT INFORMATION
  Report Type: 
  Country: None (occurrence: None)
  Receive Date: 20110722
  Receipt Date: 20110718
  Transmission Date: 20111222
  Serious: Yes (Death, Other)
  Sender: FDA-Public Use
  Company Number: PHHY2011IN65062

PATIENT
  Sex: Male

DRUGS (1)
  1. ZOLPIDEM [Suspect]
     Route: 064

REACTIONS (4)
  - MENINGOMYELOCELE [None]
  - DEATH [None]
  - CONGENITAL HYDROCEPHALUS [None]
  - MATERNAL EXPOSURE DURING PREGNANCY [None]
